FAERS Safety Report 5602069-5 (Version None)
Quarter: 2008Q1

REPORT INFORMATION
  Report Type: 
  Country: None (occurrence: None)
  Receive Date: 20080122
  Receipt Date: 20080122
  Transmission Date: 20080703
  Serious: No
  Sender: FDA-Public Use
  Company Number: None

PATIENT
  Sex: Female
  Weight: 58.9676 kg

DRUGS (2)
  1. BUDEPRION XL   300MG   TEVA USADIST [Suspect]
     Indication: DEPRESSION
     Dosage: 1 TABLET EVERY DAY PO
     Route: 048
     Dates: start: 20070924, end: 20071028
  2. BUDEPRION XL   300MG   TEVA USADIST [Suspect]
     Indication: DEPRESSION
     Dosage: 1 TABLET EVERY DAY PO
     Route: 048
     Dates: start: 20080107, end: 20080114

REACTIONS (5)
  - DEPRESSION [None]
  - DRUG INEFFECTIVE [None]
  - PERSONALITY CHANGE [None]
  - PHARMACEUTICAL PRODUCT COMPLAINT [None]
  - SUICIDAL IDEATION [None]
